FAERS Safety Report 4804199-4 (Version None)
Quarter: 2005Q4

REPORT INFORMATION
  Report Type: 
  Country: None (occurrence: None)
  Receive Date: 20051017
  Receipt Date: 20051003
  Transmission Date: 20060501
  Serious: Yes (Death)
  Sender: FDA-Public Use
  Company Number: B0395768A

PATIENT
  Age: 22 Year

DRUGS (4)
  1. WELLBUTRIN [Suspect]
     Dosage: ORAL
     Route: 048
  2. FLUOXETINE [Suspect]
     Dosage: ORAL
     Route: 048
  3. METHADONE HCL [Suspect]
     Dosage: ORAL
     Route: 048
  4. UNKNOWN (FORMULATION UNKNOWN) (UNKNOWN) [Suspect]
     Dosage: ORAL
     Route: 048

REACTIONS (1)
  - CARDIO-RESPIRATORY ARREST [None]
